FAERS Safety Report 11375200 (Version 1)
Quarter: 2015Q3

REPORT INFORMATION
  Report Type: Spontaneous
  Country: US (occurrence: US)
  Receive Date: 20150813
  Receipt Date: 20150813
  Transmission Date: 20151125
  Serious: No
  Sender: FDA-Public Use
  Company Number: US-ASTRAZENECA-2015SE76536

PATIENT
  Sex: Female

DRUGS (7)
  1. VITAMIN B12 [Concomitant]
     Active Substance: CYANOCOBALAMIN
  2. ISOSORBIDE. [Concomitant]
     Active Substance: ISOSORBIDE
  3. PRAVASTATIN [Concomitant]
     Active Substance: PRAVASTATIN\PRAVASTATIN SODIUM
  4. LISINOPRIL. [Suspect]
     Active Substance: LISINOPRIL
     Dosage: DOSE UNKNOWN
     Route: 048
  5. CARVEDILOL. [Concomitant]
     Active Substance: CARVEDILOL
  6. BYDUREON [Suspect]
     Active Substance: EXENATIDE
     Indication: TYPE 2 DIABETES MELLITUS
     Route: 058
  7. METFORMIN [Concomitant]
     Active Substance: METFORMIN HYDROCHLORIDE
     Indication: TYPE 2 DIABETES MELLITUS
     Route: 048

REACTIONS (3)
  - Abdominal discomfort [Unknown]
  - Lipase increased [Unknown]
  - Gastrointestinal pain [Unknown]
